FAERS Safety Report 17421887 (Version 1)
Quarter: 2020Q1

REPORT INFORMATION
  Report Type: Spontaneous
  Country: US (occurrence: US)
  Receive Date: 20200214
  Receipt Date: 20200214
  Transmission Date: 20200409
  Serious: No
  Sender: FDA-Public Use
  Company Number: US-GALDERMA-US19053829

PATIENT
  Age: 28 Year
  Sex: Female

DRUGS (8)
  1. TYLENOL [Concomitant]
     Active Substance: ACETAMINOPHEN
     Indication: HEADACHE
  2. PROACTIV DEEP CLEANSING WASH [Concomitant]
     Active Substance: SALICYLIC ACID
     Indication: ACNE
     Route: 061
     Dates: start: 20190430, end: 20190531
  3. PROACTIV AMAZONIAN CLAY MASK [Concomitant]
     Indication: ACNE
     Route: 061
     Dates: start: 20190430, end: 20190531
  4. PROACTIV MD ADAPALENE ACNE TREATMENT [Suspect]
     Active Substance: ADAPALENE
     Indication: ACNE
     Dosage: 0.1%
     Route: 061
     Dates: start: 20190430, end: 20190531
  5. PROACTIV MD DAILY OIL CONTROL SPF 30 [Suspect]
     Active Substance: AVOBENZONE\OCTISALATE\OCTOCRYLENE
     Indication: ACNE
     Route: 061
     Dates: start: 20190430, end: 20190531
  6. PROACTIV REDNESS RELIEF SERUM [Concomitant]
     Indication: ACNE
     Route: 061
     Dates: start: 20190430, end: 20190531
  7. PROACTIV MD DEEP CLEANSING FACE WASH [Concomitant]
     Active Substance: COSMETICS
     Indication: ACNE
     Route: 061
     Dates: start: 20190430, end: 20190531
  8. PROACTIV GREEN TEA MOISTURIZER [Concomitant]
     Active Substance: COSMETICS
     Indication: ACNE
     Route: 061
     Dates: start: 20190430, end: 20190531

REACTIONS (4)
  - Rash [Recovered/Resolved]
  - Skin irritation [Recovered/Resolved]
  - Erythema [Recovered/Resolved]
  - Acne [Recovered/Resolved]

NARRATIVE: CASE EVENT DATE: 201905
